FAERS Safety Report 10742884 (Version 11)
Quarter: 2016Q1

REPORT INFORMATION
  Report Type: Spontaneous
  Country: US (occurrence: US)
  Receive Date: 20150127
  Receipt Date: 20160120
  Transmission Date: 20160525
  Serious: Yes (Hospitalization, Disabling, Other)
  Sender: FDA-Public Use
  Company Number: US-009507513-1501USA010495

PATIENT
  Sex: Female

DRUGS (3)
  1. FOSAMAX [Suspect]
     Active Substance: ALENDRONATE SODIUM
     Indication: OSTEOPOROSIS
     Dosage: 70 MG, QW
     Route: 048
     Dates: start: 20030731, end: 20031023
  2. FOSAMAX [Suspect]
     Active Substance: ALENDRONATE SODIUM
     Dosage: UNK, QD
     Route: 048
  3. ACTONEL [Suspect]
     Active Substance: RISEDRONATE SODIUM
     Indication: OSTEOPOROSIS
     Dosage: 35 MG, QW
     Route: 048
     Dates: start: 200312, end: 200507

REACTIONS (59)
  - Low turnover osteopathy [Not Recovered/Not Resolved]
  - Endodontic procedure [Unknown]
  - Ankle fracture [Unknown]
  - Endodontic procedure [Unknown]
  - Periodontal disease [Unknown]
  - Arthritis [Unknown]
  - Headache [Unknown]
  - Tooth extraction [Unknown]
  - Toothache [Unknown]
  - Ulcer [Unknown]
  - Gingival pain [Unknown]
  - Device failure [Unknown]
  - Tooth fracture [Unknown]
  - Myalgia [Unknown]
  - Dental caries [Unknown]
  - Periodontitis [Not Recovered/Not Resolved]
  - Loose tooth [Unknown]
  - Endodontic procedure [Unknown]
  - Pulpitis dental [Unknown]
  - Sinus disorder [Unknown]
  - Osteoarthritis [Unknown]
  - Tooth abscess [Unknown]
  - Blood cholesterol increased [Not Recovered/Not Resolved]
  - Endodontic procedure [Unknown]
  - Tooth fracture [Unknown]
  - Temporomandibular joint syndrome [Unknown]
  - Tooth extraction [Unknown]
  - Tooth fracture [Unknown]
  - Lymphadenopathy [Unknown]
  - Tension headache [Unknown]
  - Trismus [Unknown]
  - Dental necrosis [Unknown]
  - Dental pulp disorder [Unknown]
  - Dry mouth [Unknown]
  - Tooth disorder [Unknown]
  - Stress [Unknown]
  - Pain in jaw [Unknown]
  - Pneumonia [Unknown]
  - Herpes zoster [Not Recovered/Not Resolved]
  - Osteoarthritis [Unknown]
  - Hyperlipidaemia [Unknown]
  - Gingivitis [Unknown]
  - Dental implantation [Unknown]
  - Pulpitis dental [Unknown]
  - Loose tooth [Unknown]
  - Dental caries [Unknown]
  - Nervousness [Unknown]
  - Dental necrosis [Unknown]
  - Gastrooesophageal reflux disease [Unknown]
  - Osteonecrosis of jaw [Not Recovered/Not Resolved]
  - Tooth disorder [Unknown]
  - Dental caries [Unknown]
  - Arthropod sting [Unknown]
  - Tooth disorder [Unknown]
  - Raynaud^s phenomenon [Unknown]
  - Oral infection [Unknown]
  - Gingival disorder [Unknown]
  - Impaired healing [Unknown]
  - Arthralgia [Unknown]

NARRATIVE: CASE EVENT DATE: 1998
